FAERS Safety Report 8477472-9 (Version None)
Quarter: 2012Q2

REPORT INFORMATION
  Report Type: 
  Country: None (occurrence: None)
  Receive Date: 20120629
  Receipt Date: 20120626
  Transmission Date: 20120825
  Serious: Yes (Other)
  Sender: FDA-Public Use
  Company Number: PHHY2012DE055431

PATIENT
  Age: 81 Year
  Sex: Male

DRUGS (4)
  1. WARFARIN SODIUM [Concomitant]
  2. VALSARTAN  AND HYDROCHLOROTHIAZIDE [Suspect]
     Dosage: 1 DF, (80 MG VAL/ 12.5 MG HCT)
  3. LASIX [Concomitant]
  4. ALLOPURINOL [Concomitant]

REACTIONS (3)
  - CARDIAC FAILURE [None]
  - INFECTION [None]
  - OEDEMA [None]
